FAERS Safety Report 20102880 (Version 3)
Quarter: 2021Q4

REPORT INFORMATION
  Report Type: Spontaneous
  Country: CL (occurrence: CL)
  Receive Date: 20211123
  Receipt Date: 20211222
  Transmission Date: 20220303
  Serious: Yes (Hospitalization)
  Sender: FDA-Public Use
  Company Number: CL-BIOMARINAP-CL-2021-139786

PATIENT
  Age: 12 Year
  Sex: Female

DRUGS (3)
  1. ALDURAZYME [Suspect]
     Active Substance: LARONIDASE
     Indication: Mucopolysaccharidosis I
     Dosage: 31.9 MILLIGRAM
     Route: 041
     Dates: start: 20200429
  2. ALDURAZYME [Suspect]
     Active Substance: LARONIDASE
     Dosage: 31.9 MILLIGRAM
     Route: 041
  3. CHLORPHENIRAMINE MALEATE [Concomitant]
     Active Substance: CHLORPHENIRAMINE MALEATE
     Indication: Premedication
     Dosage: UNK
     Dates: start: 20171017, end: 20171017

REACTIONS (13)
  - Gallbladder disorder [Unknown]
  - Abdominal pain [Unknown]
  - Procedural pain [Unknown]
  - Food poisoning [Unknown]
  - Suspected COVID-19 [Not Recovered/Not Resolved]
  - Dysphagia [Unknown]
  - Abscess neck [Unknown]
  - Back pain [Unknown]
  - Diarrhoea [Unknown]
  - Vomiting [Unknown]
  - Pyrexia [Unknown]
  - Headache [Unknown]
  - Quarantine [Unknown]

NARRATIVE: CASE EVENT DATE: 20210423
